FAERS Safety Report 8491493 (Version 13)
Quarter: 2014Q1

REPORT INFORMATION
  Report Type: Report from Study
  Country: CA (occurrence: CA)
  Receive Date: 20120403
  Receipt Date: 20140312
  Transmission Date: 20141002
  Serious: Yes (Other)
  Sender: FDA-Public Use
  Company Number: CA-ROCHE-1051028

PATIENT
  Age: 52 Year
  Sex: Female
  Weight: 79 kg

DRUGS (7)
  1. ACTEMRA [Suspect]
     Indication: RHEUMATOID ARTHRITIS
     Route: 042
     Dates: start: 20101029
  2. ACTEMRA [Suspect]
     Route: 042
     Dates: start: 20110401
  3. ACTEMRA [Suspect]
     Dosage: LAST DOSE OF TOCILIZUMAB: 10/AUG/2012
     Route: 042
     Dates: start: 20111216, end: 20120316
  4. ACTEMRA [Suspect]
     Route: 042
     Dates: start: 20140207
  5. LOSEC [Concomitant]
  6. ARAVA [Concomitant]
  7. TURMERIC [Concomitant]

REACTIONS (22)
  - Helicobacter infection [Recovering/Resolving]
  - Headache [Not Recovered/Not Resolved]
  - Eye disorder [Not Recovered/Not Resolved]
  - Skin lesion [Not Recovered/Not Resolved]
  - Neoplasm skin [Not Recovered/Not Resolved]
  - Headache [Not Recovered/Not Resolved]
  - Hyperhidrosis [Not Recovered/Not Resolved]
  - Nightmare [Not Recovered/Not Resolved]
  - Musculoskeletal stiffness [Not Recovered/Not Resolved]
  - Joint swelling [Not Recovered/Not Resolved]
  - Skin papilloma [Unknown]
  - Herpes zoster [Unknown]
  - Bronchitis [Unknown]
  - Nasopharyngitis [Recovering/Resolving]
  - Influenza [Unknown]
  - Weight fluctuation [Not Recovered/Not Resolved]
  - Furuncle [Unknown]
  - Blood pressure increased [Not Recovered/Not Resolved]
  - Rheumatoid arthritis [Unknown]
  - Cough [Not Recovered/Not Resolved]
  - Sinus congestion [Unknown]
  - Dental caries [Unknown]
